FAERS Safety Report 15826511 (Version 1)
Quarter: 2019Q1

REPORT INFORMATION
  Report Type: Spontaneous
  Country: US (occurrence: US)
  Receive Date: 20190115
  Receipt Date: 20190115
  Transmission Date: 20190417
  Serious: Yes (Death)
  Sender: FDA-Public Use
  Company Number: None

PATIENT
  Age: 80 Year
  Sex: Male
  Weight: 93.2 kg

DRUGS (7)
  1. CEPHALEXIN 500 MG 3 TIMES DAILY [Concomitant]
     Dates: start: 20181220, end: 20181226
  2. INSULIN GLARGINE 32 UNITS NIGHTLY [Concomitant]
  3. ROSUVASTATIN. [Suspect]
     Active Substance: ROSUVASTATIN
     Indication: HYPERLIPIDAEMIA
     Route: 048
     Dates: start: 20131218, end: 20181226
  4. CHOLECALCIFEROL 2,000 UNITS DAILY [Concomitant]
  5. FEBUXOSTAT 40 MG DAILY [Concomitant]
  6. ASPIRIN 81 MG NIGHTLY [Concomitant]
  7. CARVEDILOL 12.5 MG TWICE DAILY [Concomitant]

REACTIONS (4)
  - Apnoea [None]
  - Myopathy [None]
  - Cardio-respiratory arrest [None]
  - Cardiac arrest [None]

NARRATIVE: CASE EVENT DATE: 20181227
